FAERS Safety Report 8954708 (Version 1)
Quarter: 2012Q4

REPORT INFORMATION
  Report Type: 
  Country: US (occurrence: US)
  Receive Date: 20121207
  Receipt Date: 20121207
  Transmission Date: 20130627
  Serious: Yes (Other)
  Sender: FDA-Public Use
  Company Number: US-TEVA-374216USA

PATIENT
  Sex: Male

DRUGS (1)
  1. MERCAPTOPURINE [Suspect]
     Indication: CROHN^S DISEASE

REACTIONS (2)
  - Hepatic cirrhosis [Unknown]
  - Platelet count decreased [Unknown]
